FAERS Safety Report 10060247 (Version 1)
Quarter: 2014Q2

REPORT INFORMATION
  Report Type: Spontaneous
  Country: MY (occurrence: MY)
  Receive Date: 20140404
  Receipt Date: 20140404
  Transmission Date: 20141212
  Serious: Yes (Hospitalization)
  Sender: FDA-Public Use
  Company Number: PHHY2014MY036372

PATIENT
  Age: 74 Year
  Sex: Male

DRUGS (9)
  1. METFORMIN [Suspect]
     Indication: TYPE 2 DIABETES MELLITUS
     Dosage: 1 G, BID
  2. GLICLAZIDE [Suspect]
     Indication: TYPE 2 DIABETES MELLITUS
     Dosage: 120 MG, BID
  3. GLICLAZIDE [Suspect]
     Dosage: 30 MG, DAILY
  4. ASPIRIN [Concomitant]
     Dosage: 150 MG, UNK
  5. VITAMIN B COMPLEX [Concomitant]
     Dosage: 1 DF, UNK
  6. PERINDOPRIL [Concomitant]
     Dosage: 4 MG, UNK
  7. VITAMIN B12 [Concomitant]
     Dosage: 1 MG,ALTERNATE DAY FOR 3 DAYS
     Route: 030
  8. VITAMIN B12 [Concomitant]
     Dosage: 1 MG, WEEKLY FOR 3 WEEKS
  9. VITAMIN B12 [Concomitant]
     Dosage: 1 MG, MONTHLY FOR 3 MONTHS

REACTIONS (10)
  - Hypoglycaemia [Recovered/Resolved]
  - Somnolence [Recovered/Resolved]
  - Malabsorption [Unknown]
  - Unresponsive to stimuli [Recovered/Resolved]
  - Anaemia macrocytic [Recovering/Resolving]
  - Change of bowel habit [Recovered/Resolved]
  - Diarrhoea [Recovered/Resolved]
  - Weight decreased [Recovering/Resolving]
  - Diabetes mellitus inadequate control [Recovering/Resolving]
  - Drug ineffective [Unknown]
